FAERS Safety Report 8448639-0 (Version None)
Quarter: 2012Q2

REPORT INFORMATION
  Report Type: 
  Country: None (occurrence: None)
  Receive Date: 20120619
  Receipt Date: 20120613
  Transmission Date: 20120825
  Serious: Yes (Hospitalization)
  Sender: FDA-Public Use
  Company Number: AR-ROCHE-1079499

PATIENT
  Sex: Female

DRUGS (1)
  1. LUCENTIS [Suspect]
     Indication: MACULOPATHY
     Route: 050
     Dates: start: 20110627

REACTIONS (3)
  - GASTROINTESTINAL DISORDER [None]
  - VISUAL ACUITY REDUCED [None]
  - NO THERAPEUTIC RESPONSE [None]
